FAERS Safety Report 19428417 (Version 2)
Quarter: 2021Q2

REPORT INFORMATION
  Report Type: Spontaneous
  Country: CA (occurrence: CA)
  Receive Date: 20210617
  Receipt Date: 20210630
  Transmission Date: 20210717
  Serious: Yes (Other)
  Sender: FDA-Public Use
  Company Number: CA-TEVA-2021-CA-1922460

PATIENT
  Sex: Male

DRUGS (6)
  1. MIRABEGRON [Suspect]
     Active Substance: MIRABEGRON
     Indication: HYPERTONIC BLADDER
  2. TAMSULOSIN [Suspect]
     Active Substance: TAMSULOSIN
     Indication: HYPERTONIC BLADDER
  3. TAMSULOSIN [Suspect]
     Active Substance: TAMSULOSIN
     Indication: LOWER URINARY TRACT SYMPTOMS
  4. MIRABEGRON [Suspect]
     Active Substance: MIRABEGRON
     Indication: BENIGN PROSTATIC HYPERPLASIA
     Dosage: A 4?WEEK, OPEN?LABEL RUN?IN PERIOD TAMSULOSIN 0.4MG ONCE DAILY, FOLLOWED BY A 12?WEEK, DOUBLE?BLI...
     Route: 065
  5. MIRABEGRON [Suspect]
     Active Substance: MIRABEGRON
     Indication: LOWER URINARY TRACT SYMPTOMS
  6. TAMSULOSIN [Suspect]
     Active Substance: TAMSULOSIN
     Indication: BENIGN PROSTATIC HYPERPLASIA
     Dosage: .4 MILLIGRAM DAILY; A 4?WEEK, OPEN?LABEL RUN?IN PERIOD TAMSULOSIN 0.4MG ONCE DAILY, FOLLOWED BY A 12
     Route: 065

REACTIONS (1)
  - Angina pectoris [Unknown]
